FAERS Safety Report 17541808 (Version 1)
Quarter: 2020Q1

REPORT INFORMATION
  Report Type: Spontaneous
  Country: US (occurrence: US)
  Receive Date: 20200313
  Receipt Date: 20200313
  Transmission Date: 20200409
  Serious: No
  Sender: FDA-Public Use
  Company Number: US-ALMIRALL, LLC-2019AQU000472

PATIENT

DRUGS (3)
  1. ACZONE [Suspect]
     Active Substance: DAPSONE
     Dosage: UNK, QD
     Route: 061
     Dates: start: 20190903
  2. ACZONE [Suspect]
     Active Substance: DAPSONE
     Dosage: UNK, QD
     Route: 061
     Dates: start: 2019
  3. ACZONE [Suspect]
     Active Substance: DAPSONE
     Indication: ACNE
     Dosage: UNK, QD
     Route: 061
     Dates: start: 2016

REACTIONS (2)
  - Product physical consistency issue [Unknown]
  - Application site pain [Recovered/Resolved]

NARRATIVE: CASE EVENT DATE: 2019
